FAERS Safety Report 16412437 (Version 3)
Quarter: 2019Q3

REPORT INFORMATION
  Report Type: Spontaneous
  Country: US (occurrence: US)
  Receive Date: 20190610
  Receipt Date: 20190718
  Transmission Date: 20191004
  Serious: Yes (Other)
  Sender: FDA-Public Use
  Company Number: US-ASTRAZENECA-2018SF64848

PATIENT
  Age: 524 Month
  Sex: Female
  Weight: 125.2 kg

DRUGS (38)
  1. TYLENOL [Concomitant]
     Active Substance: ACETAMINOPHEN
  2. PANTOPRAZOLE [Concomitant]
     Active Substance: PANTOPRAZOLE
  3. LORATADINE. [Concomitant]
     Active Substance: LORATADINE
  4. MONTELUKAST [Concomitant]
     Active Substance: MONTELUKAST SODIUM
  5. LIDOCAINE. [Concomitant]
     Active Substance: LIDOCAINE
  6. ALBUTEROL. [Concomitant]
     Active Substance: ALBUTEROL
  7. PEPTO-BISMOL [Concomitant]
     Active Substance: BISMUTH SUBSALICYLATE
  8. VISTARIL [Concomitant]
     Active Substance: HYDROXYZINE PAMOATE
  9. LEVOFLOXACIN. [Concomitant]
     Active Substance: LEVOFLOXACIN
  10. LOSARTAN. [Concomitant]
     Active Substance: LOSARTAN
  11. VENLAFAXINE [Concomitant]
     Active Substance: VENLAFAXINE HYDROCHLORIDE
  12. FLUCONAZOLE. [Concomitant]
     Active Substance: FLUCONAZOLE
  13. PRILOSEC [Suspect]
     Active Substance: OMEPRAZOLE MAGNESIUM
     Indication: GASTROOESOPHAGEAL REFLUX DISEASE
     Dosage: GENERIC
     Route: 065
     Dates: start: 2017, end: 201902
  14. HUMULIN NOS [Concomitant]
     Active Substance: INSULIN HUMAN
  15. TIZANIDINE. [Concomitant]
     Active Substance: TIZANIDINE
  16. PEPCID [Concomitant]
     Active Substance: FAMOTIDINE
  17. PRILOSEC [Suspect]
     Active Substance: OMEPRAZOLE MAGNESIUM
     Indication: GASTROOESOPHAGEAL REFLUX DISEASE
     Route: 048
     Dates: start: 20000101, end: 20141231
  18. DEPAKOTE [Concomitant]
     Active Substance: DIVALPROEX SODIUM
  19. ATORVASTATIN [Concomitant]
     Active Substance: ATORVASTATIN
  20. PANTOPRAZOLE [Suspect]
     Active Substance: PANTOPRAZOLE
     Indication: GASTROOESOPHAGEAL REFLUX DISEASE
     Dosage: GENERIC
     Route: 065
     Dates: start: 201601, end: 201902
  21. CEPHALEXIN. [Concomitant]
     Active Substance: CEPHALEXIN
  22. PRILOSEC OTC [Suspect]
     Active Substance: OMEPRAZOLE MAGNESIUM
     Route: 048
     Dates: start: 200001, end: 201412
  23. OXYCODONE/APAP [Concomitant]
     Active Substance: ACETAMINOPHEN\OXYCODONE HYDROCHLORIDE
  24. DILANTIN [Concomitant]
     Active Substance: PHENYTOIN
  25. LOVENOX [Concomitant]
     Active Substance: ENOXAPARIN SODIUM
  26. FOLIC ACID. [Concomitant]
     Active Substance: FOLIC ACID
  27. LORATADINE. [Concomitant]
     Active Substance: LORATADINE
  28. POTASSIUM CHLORIDE. [Concomitant]
     Active Substance: POTASSIUM CHLORIDE
  29. PHENOBARBITAL. [Concomitant]
     Active Substance: PHENOBARBITAL
  30. SOLU-MEDROL [Concomitant]
     Active Substance: METHYLPREDNISOLONE SODIUM SUCCINATE
  31. NYSTATIN. [Concomitant]
     Active Substance: NYSTATIN
  32. HYDROXYZINE [Concomitant]
     Active Substance: HYDROXYZINE HYDROCHLORIDE
  33. EFFEXOR [Concomitant]
     Active Substance: VENLAFAXINE HYDROCHLORIDE
  34. INSULIN [Concomitant]
     Active Substance: INSULIN NOS
  35. PREDNISONE. [Concomitant]
     Active Substance: PREDNISONE
  36. ONDANSETRON [Concomitant]
     Active Substance: ONDANSETRON
  37. BENZONATATE. [Concomitant]
     Active Substance: BENZONATATE
  38. ZANTAC [Concomitant]
     Active Substance: RANITIDINE HYDROCHLORIDE

REACTIONS (8)
  - Renal failure [Not Recovered/Not Resolved]
  - Renal tubular necrosis [Unknown]
  - Dyspepsia [Unknown]
  - Acute kidney injury [Not Recovered/Not Resolved]
  - Renal injury [Unknown]
  - Chronic kidney disease [Not Recovered/Not Resolved]
  - End stage renal disease [Not Recovered/Not Resolved]
  - Tubulointerstitial nephritis [Unknown]

NARRATIVE: CASE EVENT DATE: 201602
